FAERS Safety Report 8462596 (Version 2)
Quarter: 2013Q1

REPORT INFORMATION
  Report Type: Spontaneous
  Country: JP (occurrence: JP)
  Receive Date: 20120316
  Receipt Date: 20130205
  Transmission Date: 20140127
  Serious: Yes (Other)
  Sender: FDA-Public Use
  Company Number: JP-JNJFOC-20120304604

PATIENT
  Sex: 0

DRUGS (1)
  1. INFLIXIMAB, RECOMBINANT [Suspect]
     Indication: CROHN^S DISEASE
     Route: 042
     Dates: start: 2000, end: 201104

REACTIONS (3)
  - Abscess [Unknown]
  - Anorectal disorder [Unknown]
  - Therapeutic response decreased [Unknown]
